FAERS Safety Report 4544822-5 (Version None)
Quarter: 2005Q1

REPORT INFORMATION
  Report Type: 
  Country: None (occurrence: None)
  Receive Date: 20050105
  Receipt Date: 20041230
  Transmission Date: 20050727
  Serious: Yes (Hospitalization)
  Sender: FDA-Public Use
  Company Number: FI-MERCK-0412FIN00021

PATIENT
  Age: 51 Year
  Sex: Female

DRUGS (8)
  1. MIDAZOLAM HYDROCHLORIDE [Concomitant]
     Indication: ANAESTHESIA
     Route: 042
     Dates: start: 20030929, end: 20030929
  2. ETILEFRINE HYDROCHLORIDE [Concomitant]
     Indication: ANAESTHESIA
     Route: 042
     Dates: start: 20030929, end: 20030929
  3. CYCLIZINE [Concomitant]
     Indication: ANAESTHESIA
     Route: 048
     Dates: start: 20030929, end: 20030929
  4. METRONIDAZOLE [Concomitant]
     Route: 042
     Dates: start: 20030929, end: 20030929
  5. VIOXX [Suspect]
     Indication: POST PROCEDURAL PAIN
     Route: 048
     Dates: start: 20030929, end: 20030929
  6. PROPOFOL [Concomitant]
     Indication: ANAESTHESIA
     Route: 042
     Dates: start: 20030929, end: 20030929
  7. ROCURONIUM BROMIDE [Concomitant]
     Indication: ANAESTHESIA
     Route: 042
     Dates: start: 20030929, end: 20030929
  8. FENTANYL CITRATE [Concomitant]
     Indication: ANAESTHESIA
     Route: 042
     Dates: start: 20030929, end: 20030929

REACTIONS (2)
  - HYPOTENSION [None]
  - VENTRICULAR TACHYCARDIA [None]
